FAERS Safety Report 25419325 (Version 1)
Quarter: 2025Q2

REPORT INFORMATION
  Report Type: Spontaneous
  Country: US (occurrence: US)
  Receive Date: 20250610
  Receipt Date: 20250610
  Transmission Date: 20250717
  Serious: Yes (Life-Threatening, Other)
  Sender: PFIZER
  Company Number: US-MLMSERVICE-20250528-PI519158-00165-3

PATIENT
  Age: 16 Year
  Sex: Female

DRUGS (5)
  1. GEMCITABINE HYDROCHLORIDE [Suspect]
     Active Substance: GEMCITABINE HYDROCHLORIDE
     Indication: Angiocentric lymphoma
  2. OXALIPLATIN [Suspect]
     Active Substance: OXALIPLATIN
     Indication: Angiocentric lymphoma
  3. DEXAMETHASONE [Concomitant]
     Active Substance: DEXAMETHASONE
     Indication: Haemophagocytic lymphohistiocytosis
  4. ETOPOSIDE [Concomitant]
     Active Substance: ETOPOSIDE
     Indication: Haemophagocytic lymphohistiocytosis
  5. RITUXIMAB [Concomitant]
     Active Substance: RITUXIMAB
     Indication: Haemophagocytic lymphohistiocytosis

REACTIONS (3)
  - Epstein-Barr viraemia [Not Recovered/Not Resolved]
  - Toxicity to various agents [Not Recovered/Not Resolved]
  - Off label use [Unknown]
